FAERS Safety Report 23145415 (Version 1)
Quarter: 2023Q4

REPORT INFORMATION
  Report Type: Spontaneous
  Country: US (occurrence: None)
  Receive Date: 20231103
  Receipt Date: 20231103
  Transmission Date: 20240109
  Serious: No
  Sender: FDA-Public Use
  Company Number: None

PATIENT
  Age: 6 Year
  Sex: Female
  Weight: 20.7 kg

DRUGS (3)
  1. AMOXICILLIN\CLAVULANATE POTASSIUM [Suspect]
     Active Substance: AMOXICILLIN\CLAVULANATE POTASSIUM
     Indication: Infection
     Dates: start: 20231025
  2. amoxicillin/clavulanate suspension 400mg/57mg/5mL [Concomitant]
     Dates: start: 20231025
  3. amoxicillin suspension 400mg/5mL [Concomitant]
     Dates: start: 20231102

REACTIONS (7)
  - Product dispensing error [None]
  - Accidental overdose [None]
  - Headache [None]
  - Malaise [None]
  - Abdominal discomfort [None]
  - Dose calculation error [None]
  - Device computer issue [None]

NARRATIVE: CASE EVENT DATE: 20231102
